FAERS Safety Report 17178731 (Version 3)
Quarter: 2020Q1

REPORT INFORMATION
  Report Type: Spontaneous
  Country: FR (occurrence: FR)
  Receive Date: 20191219
  Receipt Date: 20200101
  Transmission Date: 20200409
  Serious: Yes (Other)
  Sender: FDA-Public Use
  Company Number: FR-AUROBINDO-AUR-APL-2019-076147

PATIENT
  Age: 70 Year
  Sex: Female

DRUGS (10)
  1. MARIBAVIR [Suspect]
     Active Substance: MARIBAVIR
     Dosage: 800 MILLIGRAM
     Route: 065
  2. VALGANCICLOVIR. [Suspect]
     Active Substance: VALGANCICLOVIR
     Indication: ANTIVIRAL PROPHYLAXIS
     Dosage: 450 MILLIGRAM, 3 TIMES A DAY
     Route: 065
  3. CYCLOSPORINE. [Concomitant]
     Active Substance: CYCLOSPORINE
     Indication: IMMUNOSUPPRESSION
     Dosage: UNK
     Route: 065
  4. EVEROLIMUS. [Concomitant]
     Active Substance: EVEROLIMUS
     Indication: IMMUNOSUPPRESSION
     Dosage: UNK
     Route: 065
  5. FOSCARNET [Suspect]
     Active Substance: FOSCARNET
     Indication: CYTOMEGALOVIRUS INFECTION
     Dosage: 5000 MILLIGRAM, ONCE A DAY
     Route: 065
  6. PREDNISONE. [Concomitant]
     Active Substance: PREDNISONE
     Indication: IMMUNOSUPPRESSION
     Dosage: UNK
     Route: 065
  7. VALGANCICLOVIR. [Suspect]
     Active Substance: VALGANCICLOVIR
     Indication: CYTOMEGALOVIRUS INFECTION
     Dosage: 900 MILLIGRAM, ONCE A DAY D700
     Route: 065
  8. VALGANCICLOVIR. [Suspect]
     Active Substance: VALGANCICLOVIR
     Dosage: 900 MILLIGRAM, ONCE A DAY D196
     Route: 065
  9. MARIBAVIR [Suspect]
     Active Substance: MARIBAVIR
     Indication: CYTOMEGALOVIRUS INFECTION
     Dosage: 800 MILLIGRAM, ONCE A DAY
     Route: 065
  10. MYCOPHENOLATE MOFETIL. [Concomitant]
     Active Substance: MYCOPHENOLATE MOFETIL
     Indication: IMMUNOSUPPRESSION
     Dosage: UNK
     Route: 065

REACTIONS (5)
  - Underdose [Unknown]
  - Off label use [Unknown]
  - Oedema [Unknown]
  - Drug ineffective [Unknown]
  - Pathogen resistance [Unknown]
